FAERS Safety Report 6065531-X (Version None)
Quarter: 2009Q1

REPORT INFORMATION
  Report Type: 
  Country: None (occurrence: None)
  Receive Date: 20090130
  Receipt Date: 20090122
  Transmission Date: 20090719
  Serious: Yes (Hospitalization, Other)
  Sender: FDA-Public Use
  Company Number: MSTR-NO-0802S-0008

PATIENT
  Age: 66 Year
  Sex: Male
  Weight: 51.1 kg

DRUGS (1)
  1. METASTRON [Suspect]
     Indication: METASTATIC PAIN
     Dosage: SINGLE DOSE, I.V.
     Route: 042
     Dates: start: 20080124, end: 20080124

REACTIONS (4)
  - ANAEMIA [None]
  - HEADACHE [None]
  - PLATELET COUNT DECREASED [None]
  - SUBDURAL HAEMORRHAGE [None]
